FAERS Safety Report 18497556 (Version 2)
Quarter: 2020Q4

REPORT INFORMATION
  Report Type: Report from Study
  Country: BR (occurrence: BR)
  Receive Date: 20201112
  Receipt Date: 20201124
  Transmission Date: 20210114
  Serious: Yes (Other)
  Sender: FDA-Public Use
  Company Number: PHHY2019BR199926

PATIENT
  Age: 51 Year
  Sex: Female
  Weight: 51 kg

DRUGS (10)
  1. REMICADE [Concomitant]
     Active Substance: INFLIXIMAB
     Indication: PRODUCT USED FOR UNKNOWN INDICATION
     Dosage: UNK
     Route: 065
  2. HUMIRA [Concomitant]
     Active Substance: ADALIMUMAB
     Indication: PRODUCT USED FOR UNKNOWN INDICATION
     Dosage: UNK
     Route: 065
  3. SELOZOK [Concomitant]
     Active Substance: METOPROLOL SUCCINATE
     Indication: HEART RATE INCREASED
     Dosage: 1 DF, QD
     Route: 048
     Dates: start: 201901
  4. HYLO GEL [Concomitant]
     Indication: PRODUCT USED FOR UNKNOWN INDICATION
     Dosage: AT NIGHT
     Route: 047
  5. COSENTYX [Suspect]
     Active Substance: SECUKINUMAB
     Indication: PSORIATIC ARTHROPATHY
     Dosage: 300 MG
     Route: 065
  6. COSENTYX [Suspect]
     Active Substance: SECUKINUMAB
     Dosage: 300 MG (TWO PENS OF 150MG)
     Route: 065
     Dates: start: 201909, end: 202003
  7. REFRESH [Concomitant]
     Active Substance: UNSPECIFIED INGREDIENT
     Indication: DRY EYE
     Dosage: SEVERAL TIMES A DAY
     Route: 047
  8. COSENTYX [Suspect]
     Active Substance: SECUKINUMAB
     Dosage: TWO PENS OF 150MG
     Route: 065
     Dates: start: 20190731
  9. LABIRIN [Concomitant]
     Active Substance: BETAHISTINE
     Indication: LABYRINTHITIS
     Dosage: 1 DF (EVERY 12 HOURS)
     Route: 048
  10. ADALIMUMAB [Suspect]
     Active Substance: ADALIMUMAB
     Indication: PRODUCT USED FOR UNKNOWN INDICATION
     Dosage: UNK
     Route: 065

REACTIONS (19)
  - Pain in extremity [Not Recovered/Not Resolved]
  - Haemorrhage [Recovered/Resolved]
  - Tuberculosis [Recovered/Resolved]
  - Conjunctivitis [Recovered/Resolved]
  - Pharyngeal haemorrhage [Recovered/Resolved]
  - Arthritis [Unknown]
  - Heart rate increased [Recovering/Resolving]
  - Arthralgia [Not Recovered/Not Resolved]
  - Peripheral swelling [Unknown]
  - Bronchiolitis [Unknown]
  - Visual impairment [Unknown]
  - Therapeutic response unexpected [Unknown]
  - Therapeutic product effect incomplete [Not Recovered/Not Resolved]
  - Palpitations [Recovered/Resolved]
  - Haemorrhage [Recovered/Resolved]
  - Alopecia [Recovering/Resolving]
  - Diarrhoea [Unknown]
  - Psoriasis [Recovering/Resolving]
  - Cataract [Not Recovered/Not Resolved]

NARRATIVE: CASE EVENT DATE: 20190821
